FAERS Safety Report 6122272-8 (Version None)
Quarter: 2009Q1

REPORT INFORMATION
  Report Type: 
  Country: None (occurrence: None)
  Receive Date: 20090316
  Receipt Date: 20090316
  Transmission Date: 20090719
  Serious: Yes (Life-Threatening)
  Sender: FDA-Public Use
  Company Number: None

PATIENT
  Age: 19 Year
  Sex: Male
  Weight: 79.3795 kg

DRUGS (1)
  1. FENTANYL-100 [Suspect]
     Indication: POSTOPERATIVE CARE

REACTIONS (2)
  - CEREBRAL HAEMORRHAGE [None]
  - GRAND MAL CONVULSION [None]
